FAERS Safety Report 8295028-8 (Version None)
Quarter: 2012Q2

REPORT INFORMATION
  Report Type: 
  Country: None (occurrence: None)
  Receive Date: 20120418
  Receipt Date: 20120412
  Transmission Date: 20120825
  Serious: Yes (Life-Threatening, Hospitalization)
  Sender: FDA-Public Use
  Company Number: US-ELI_LILLY_AND_COMPANY-US201204005028

PATIENT
  Age: 75 Year
  Sex: Female

DRUGS (4)
  1. ANGIOMAX [Concomitant]
  2. EFFIENT [Suspect]
     Indication: STENT PLACEMENT
     Dosage: 60 MG, SINGLE
     Dates: start: 20120330, end: 20120330
  3. ASPIRIN [Concomitant]
  4. HEPARIN [Concomitant]

REACTIONS (4)
  - IN-STENT ARTERIAL RESTENOSIS [None]
  - MYOCARDIAL INFARCTION [None]
  - HYPERTENSION [None]
  - PERICARDIAL HAEMORRHAGE [None]
